FAERS Safety Report 5605579-X (Version None)
Quarter: 2008Q1

REPORT INFORMATION
  Report Type: 
  Country: None (occurrence: None)
  Receive Date: 20080129
  Receipt Date: 20080121
  Transmission Date: 20080703
  Serious: Yes (Hospitalization)
  Sender: FDA-Public Use
  Company Number: US-JNJFOC-20071201217

PATIENT
  Sex: Female

DRUGS (1)
  1. REMICADE [Suspect]
     Indication: PSORIATIC ARTHROPATHY
     Dosage: FIRST INFUSION OF INFLIXIMAB
     Route: 042

REACTIONS (2)
  - ANTIBODY TEST POSITIVE [None]
  - TYPE IV HYPERSENSITIVITY REACTION [None]
